FAERS Safety Report 5420653-9 (Version None)
Quarter: 2007Q3

REPORT INFORMATION
  Report Type: 
  Country: None (occurrence: None)
  Receive Date: 20070821
  Receipt Date: 20070814
  Transmission Date: 20080115
  Serious: Yes (Hospitalization)
  Sender: FDA-Public Use
  Company Number: US-BRISTOL-MYERS SQUIBB COMPANY-13878194

PATIENT
  Age: 62 Year
  Sex: Female
  Weight: 81 kg

DRUGS (8)
  1. DASATINIB [Suspect]
     Indication: COLON CANCER
     Route: 048
     Dates: start: 20070730, end: 20070806
  2. DASATINIB [Suspect]
     Indication: PANCREATIC CARCINOMA
     Route: 048
     Dates: start: 20070730, end: 20070806
  3. CETUXIMAB [Suspect]
     Indication: PANCREATIC CARCINOMA
     Dates: start: 20070806, end: 20070806
  4. CETUXIMAB [Suspect]
     Indication: COLON CANCER
     Dates: start: 20070806, end: 20070806
  5. GEMCITABINE HCL [Suspect]
     Indication: PANCREATIC CARCINOMA
     Route: 042
     Dates: start: 20070806, end: 20070806
  6. GEMCITABINE HCL [Suspect]
     Indication: COLON CANCER
     Route: 042
     Dates: start: 20070806, end: 20070806
  7. LANTUS [Concomitant]
  8. LISINOPRIL [Concomitant]
     Dosage: 20/12.5 BID DAILY

REACTIONS (2)
  - INFECTION [None]
  - NEUTROPENIA [None]
